FAERS Safety Report 15428048 (Version 2)
Quarter: 2018Q4

REPORT INFORMATION
  Report Type: Spontaneous
  Country: US (occurrence: US)
  Receive Date: 20180926
  Receipt Date: 20181024
  Transmission Date: 20190204
  Serious: Yes (Hospitalization, Other)
  Sender: FDA-Public Use
  Company Number: US-PRINSTON PHARMACEUTICAL INC.-2018PRN00714

PATIENT
  Age: 65 Year
  Sex: Female
  Weight: 58.5 kg

DRUGS (5)
  1. METOPROLOL. [Concomitant]
     Active Substance: METOPROLOL
  2. DIAZEPAM. [Concomitant]
     Active Substance: DIAZEPAM
     Dosage: UNK, AS NEEDED
  3. CRESTOR [Concomitant]
     Active Substance: ROSUVASTATIN CALCIUM
     Dosage: UNK
     Dates: end: 2016
  4. VALSARTAN. [Suspect]
     Active Substance: VALSARTAN
     Indication: HYPERTENSION
     Dosage: 160 MG, UNK
     Route: 048
     Dates: start: 20180718, end: 201807
  5. VALSARTAN. [Suspect]
     Active Substance: VALSARTAN
     Dosage: 160 MG, UNK
     Route: 048
     Dates: start: 20120712, end: 201807

REACTIONS (25)
  - Cervical vertebral fracture [Recovered/Resolved]
  - Gastrointestinal disorder [Not Recovered/Not Resolved]
  - Gastrointestinal sounds abnormal [Recovering/Resolving]
  - Nasal congestion [Not Recovered/Not Resolved]
  - Dyspepsia [Not Recovered/Not Resolved]
  - Fatigue [Unknown]
  - Pulmonary mass [Unknown]
  - Weight decreased [Recovering/Resolving]
  - Anxiety [Not Recovered/Not Resolved]
  - Eating disorder [Not Recovered/Not Resolved]
  - Headache [Not Recovered/Not Resolved]
  - Anaemia [Recovering/Resolving]
  - Panic attack [Not Recovered/Not Resolved]
  - Hepatic cyst [Unknown]
  - Feeling abnormal [Not Recovered/Not Resolved]
  - Flatulence [Recovering/Resolving]
  - Gastric ulcer [Unknown]
  - Renal cyst [Recovered/Resolved]
  - Large intestine polyp [Unknown]
  - Bladder disorder [Not Recovered/Not Resolved]
  - Musculoskeletal discomfort [Not Recovered/Not Resolved]
  - Blood pressure increased [Unknown]
  - Ilium fracture [Recovered/Resolved]
  - Road traffic accident [Recovered/Resolved]
  - Constipation [Not Recovered/Not Resolved]

NARRATIVE: CASE EVENT DATE: 201305
